FAERS Safety Report 4362503-8 (Version None)
Quarter: 2004Q2

REPORT INFORMATION
  Report Type: 
  Country: None (occurrence: None)
  Receive Date: 20040518
  Receipt Date: 20040507
  Transmission Date: 20050107
  Serious: Yes (Death)
  Sender: FDA-Public Use
  Company Number: US-JNJFOC-20040501663

PATIENT
  Age: 52 Year
  Sex: Male

DRUGS (9)
  1. INFLIXIMAB (INFLIXIMAB, RECOMBINANT) LYOPHILIZED POWDER [Suspect]
     Indication: RHEUMATOID ARTHRITIS
     Dosage: INTRAVENOUS
     Route: 042
     Dates: start: 20011001, end: 20011001
  2. METHADONE (METHADONE) [Concomitant]
  3. ARAVA [Concomitant]
  4. METHOTREXATE [Concomitant]
  5. FOLIC ACID [Concomitant]
  6. SULFASALAZINE [Concomitant]
  7. DOXEPIN (DOXEPIN) [Concomitant]
  8. CLONAZEPAM [Concomitant]
  9. VIOXX [Concomitant]

REACTIONS (1)
  - DEATH [None]
